FAERS Safety Report 15642778 (Version 3)
Quarter: 2019Q2

REPORT INFORMATION
  Report Type: Spontaneous
  Country: JP (occurrence: JP)
  Receive Date: 20181121
  Receipt Date: 20190507
  Transmission Date: 20190711
  Serious: Yes (Hospitalization, Other)
  Sender: FDA-Public Use
  Company Number: JP-SUN PHARMACEUTICAL INDUSTRIES LTD-2018R1-191608

PATIENT
  Age: 29 Year
  Sex: Male

DRUGS (8)
  1. QUAZEPAM. [Concomitant]
     Active Substance: QUAZEPAM
     Indication: INSOMNIA
     Dosage: UNK
     Route: 065
  2. ZOLPIDEM [Suspect]
     Active Substance: ZOLPIDEM\ZOLPIDEM TARTRATE
     Dosage: 10 MILLIGRAM, DAILY (AT BEDTIME)
     Route: 065
  3. ZOLPIDEM [Suspect]
     Active Substance: ZOLPIDEM\ZOLPIDEM TARTRATE
     Dosage: 5 MILLIGRAM, WEEKLY
     Route: 065
  4. ZOLPIDEM [Suspect]
     Active Substance: ZOLPIDEM\ZOLPIDEM TARTRATE
     Dosage: APPROX. 300 TO 400 MG (50 MG FIVE TIMES IN THE MORNING, 30 MG TWICE MID DAY AND 100 MG AT BEDTIME)
     Route: 065
  5. BROTIZOLAM [Concomitant]
     Active Substance: BROTIZOLAM
     Indication: INSOMNIA
     Dosage: UNK
     Route: 065
  6. ZOLPIDEM [Suspect]
     Active Substance: ZOLPIDEM\ZOLPIDEM TARTRATE
     Indication: INSOMNIA
     Dosage: 300 TO 1,200 MG/DAY
     Route: 065
  7. ZOLPIDEM [Suspect]
     Active Substance: ZOLPIDEM\ZOLPIDEM TARTRATE
     Dosage: TAKING ZOLPIDEM IN THE MORNING
     Route: 065
  8. ZOLPIDEM [Suspect]
     Active Substance: ZOLPIDEM\ZOLPIDEM TARTRATE
     Dosage: 40 MILLIGRAM, DAILY
     Route: 065

REACTIONS (12)
  - Road traffic accident [Unknown]
  - Performance status decreased [Unknown]
  - Agitation [Unknown]
  - Sleep disorder [Recovering/Resolving]
  - Somnolence [Recovering/Resolving]
  - Drug dependence [Unknown]
  - Drug withdrawal syndrome [Unknown]
  - Irritability [Unknown]
  - Drug abuse [Unknown]
  - Nightmare [Unknown]
  - Restlessness [Unknown]
  - Dysarthria [Unknown]
